FAERS Safety Report 7714579-5 (Version None)
Quarter: 2011Q3

REPORT INFORMATION
  Report Type: 
  Country: None (occurrence: None)
  Receive Date: 20110829
  Receipt Date: 20110823
  Transmission Date: 20111222
  Serious: No
  Sender: FDA-Public Use
  Company Number: US-PFIZER INC-2011133420

PATIENT
  Age: 57 Year
  Sex: Male

DRUGS (1)
  1. DILANTIN-125 [Suspect]
     Dosage: UNK

REACTIONS (5)
  - DENTAL CARIES [None]
  - GINGIVAL RECESSION [None]
  - TOOTH LOSS [None]
  - LOOSE TOOTH [None]
  - TOOTHACHE [None]
